FAERS Safety Report 21192213 (Version 37)
Quarter: 2024Q1

REPORT INFORMATION
  Report Type: Spontaneous
  Country: US (occurrence: US)
  Receive Date: 20220809
  Receipt Date: 20240110
  Transmission Date: 20240410
  Serious: Yes (Other)
  Sender: FDA-Public Use
  Company Number: US-PFIZER INC-PV202200038719

PATIENT
  Age: 75 Year
  Sex: Female

DRUGS (9)
  1. IBRANCE [Suspect]
     Active Substance: PALBOCICLIB
     Indication: Breast cancer metastatic
     Dosage: 125 MG
     Dates: start: 20220819, end: 20220912
  2. IBRANCE [Suspect]
     Active Substance: PALBOCICLIB
     Dosage: 100 MG
     Dates: start: 20221028
  3. IBRANCE [Suspect]
     Active Substance: PALBOCICLIB
     Dosage: TAKE 1 TABLET PER DAY
     Route: 048
  4. ZOMETA [Suspect]
     Active Substance: ZOLEDRONIC ACID
     Indication: Bone disorder
     Dosage: EVERY 4 WEEKS
     Route: 042
  5. CYANOCOBALAMIN [Concomitant]
     Active Substance: CYANOCOBALAMIN
     Dosage: UNK
  6. ZINC [Concomitant]
     Active Substance: PYRITHIONE ZINC\ZINC\ZINC CHLORIDE
     Dosage: UNK
  7. VITAMIN C [Concomitant]
     Active Substance: ASCORBIC ACID
     Dosage: UNK
  8. CALCIUM [Concomitant]
     Active Substance: CALCIUM
     Dosage: 600 MG, 2X/DAY (TWICE A DAY)
  9. VITAMIN D3 [Concomitant]
     Active Substance: CHOLECALCIFEROL
     Dosage: 5000 MG, 2X/DAY (TWICE A DAY)

REACTIONS (51)
  - Oesophageal dilatation [Unknown]
  - White blood cell count decreased [Not Recovered/Not Resolved]
  - Diverticulitis [Unknown]
  - Cerebrovascular accident [Unknown]
  - Polyp [Unknown]
  - Thyroidectomy [Unknown]
  - Spinal disorder [Unknown]
  - Osteomyelitis [Unknown]
  - Pelvic organ prolapse [Unknown]
  - Neoplasm progression [Unknown]
  - Dysphagia [Unknown]
  - Gastrooesophageal reflux disease [Unknown]
  - Epigastric discomfort [Unknown]
  - Hypoacusis [Unknown]
  - Back disorder [Unknown]
  - Pharyngeal disorder [Unknown]
  - Eructation [Unknown]
  - Diarrhoea [Unknown]
  - Fatigue [Unknown]
  - Decreased appetite [Unknown]
  - Full blood count decreased [Unknown]
  - Cystitis [Unknown]
  - Dyspepsia [Unknown]
  - Dysgeusia [Unknown]
  - Throat irritation [Unknown]
  - Gastrointestinal disorder [Unknown]
  - Therapeutic response unexpected [Unknown]
  - Cystocele [Unknown]
  - Tooth fracture [Unknown]
  - Full blood count abnormal [Unknown]
  - Fall [Unknown]
  - Headache [Not Recovered/Not Resolved]
  - Neck pain [Unknown]
  - Back pain [Unknown]
  - Asthenia [Unknown]
  - Spondylitis [Unknown]
  - Jaw disorder [Unknown]
  - Dizziness [Unknown]
  - Pain in extremity [Unknown]
  - Nasopharyngitis [Unknown]
  - Alopecia [Unknown]
  - Lacrimation increased [Unknown]
  - Eye irritation [Unknown]
  - Chills [Unknown]
  - Somnolence [Unknown]
  - Magnetic resonance imaging abnormal [Unknown]
  - Bone disorder [Unknown]
  - White blood cell count abnormal [Unknown]
  - Panic reaction [Unknown]
  - Insomnia [Unknown]
  - Tooth loss [Unknown]

NARRATIVE: CASE EVENT DATE: 20220101
